FAERS Safety Report 13060354 (Version 4)
Quarter: 2017Q1

REPORT INFORMATION
  Report Type: Report from Study
  Country: SK (occurrence: SK)
  Receive Date: 20161223
  Receipt Date: 20170110
  Transmission Date: 20170428
  Serious: Yes (Hospitalization)
  Sender: FDA-Public Use
  Company Number: SK-SA-2016SA205066

PATIENT
  Age: 39 Year
  Sex: Female
  Weight: 54 kg

DRUGS (1)
  1. LEMTRADA [Suspect]
     Active Substance: ALEMTUZUMAB
     Indication: MULTIPLE SCLEROSIS RELAPSE
     Route: 042
     Dates: start: 20161024, end: 20161028

REACTIONS (5)
  - Paraesthesia [Recovered/Resolved]
  - Uveitis [Not Recovered/Not Resolved]
  - Pyrexia [Recovered/Resolved]
  - Diarrhoea [Recovered/Resolved]
  - Rash [Recovered/Resolved]

NARRATIVE: CASE EVENT DATE: 20161024
